FAERS Safety Report 9543976 (Version 3)
Quarter: 2013Q4

REPORT INFORMATION
  Report Type: Spontaneous
  Country: US (occurrence: US)
  Receive Date: 20130923
  Receipt Date: 20131023
  Transmission Date: 20140711
  Serious: Yes (Hospitalization)
  Sender: FDA-Public Use
  Company Number: US-009507513-1309USA005121

PATIENT
  Age: 63 Year
  Sex: Female

DRUGS (5)
  1. PROVENTIL [Suspect]
     Indication: ASTHMA
     Dosage: 2 PUFFS NO MORE THAN 4 TIMES DAILY
     Route: 055
     Dates: start: 2004
  2. PROVENTIL [Suspect]
     Indication: HYPERSENSITIVITY
     Dosage: 2 PUFFS NO MORE THAN 4 TIMES
     Route: 055
     Dates: end: 2004
  3. ALBUTEROL SULFATE [Suspect]
     Dosage: UNK
     Route: 055
     Dates: start: 2004, end: 2004
  4. SEREVENT [Concomitant]
  5. NEXIUM [Concomitant]

REACTIONS (11)
  - Asthma [Recovered/Resolved]
  - Drug ineffective [Unknown]
  - Syncope [Recovered/Resolved]
  - Cardiac disorder [Unknown]
  - Oesophagitis [Unknown]
  - Asthma [Unknown]
  - Blister [Unknown]
  - Sinusitis [Unknown]
  - Oropharyngeal pain [Unknown]
  - Ear pain [Unknown]
  - Lung disorder [Unknown]
